FAERS Safety Report 18116293 (Version 1)
Quarter: 2020Q3

REPORT INFORMATION
  Report Type: Spontaneous
  Country: DK (occurrence: DK)
  Receive Date: 20200805
  Receipt Date: 20200805
  Transmission Date: 20201103
  Serious: Yes (Other)
  Sender: FDA-Public Use
  Company Number: DK-PURDUE-USA-2020-0160465

PATIENT
  Age: 45 Year
  Sex: Female

DRUGS (2)
  1. OXYCONTIN [Suspect]
     Active Substance: OXYCODONE HYDROCHLORIDE
     Indication: PAIN
     Dosage: UNK (STRENGTH: UNKNOWN DOSAGE: VARIABLE.)
     Route: 048
     Dates: start: 200905, end: 201802
  2. OXYNORM [Suspect]
     Active Substance: OXYCODONE HYDROCHLORIDE
     Indication: PAIN
     Dosage: UNK (STRENGTH: UNKNOWN DOSAGE: VARIABLE.)
     Route: 048
     Dates: start: 200905, end: 201802

REACTIONS (24)
  - Erythema [Unknown]
  - Gastric ulcer [Unknown]
  - Inflammation [Unknown]
  - Tooth injury [Unknown]
  - Pain in extremity [Unknown]
  - Drug withdrawal syndrome [Unknown]
  - Nausea [Unknown]
  - Psoriatic arthropathy [Not Recovered/Not Resolved]
  - Dental caries [Unknown]
  - Joint stiffness [Unknown]
  - Gouty arthritis [Unknown]
  - Drug dependence [Unknown]
  - Fatigue [Unknown]
  - Back pain [Unknown]
  - Mobility decreased [Unknown]
  - Duodenal ulcer [Unknown]
  - Anxiety [Unknown]
  - Joint swelling [Unknown]
  - Oesophageal ulcer [Unknown]
  - Arthralgia [Unknown]
  - Abdominal pain upper [Unknown]
  - Constipation [Unknown]
  - Muscle atrophy [Unknown]
  - Rash [Unknown]

NARRATIVE: CASE EVENT DATE: 2009
